FAERS Safety Report 24584212 (Version 1)
Quarter: 2024Q4

REPORT INFORMATION
  Report Type: Spontaneous
  Country: CN (occurrence: CN)
  Receive Date: 20241106
  Receipt Date: 20241106
  Transmission Date: 20250115
  Serious: Yes (Hospitalization)
  Sender: ROCHE
  Company Number: CN-ROCHE-10000122493

PATIENT
  Age: 58 Year
  Sex: Male
  Weight: 58 kg

DRUGS (8)
  1. BEVACIZUMAB [Suspect]
     Active Substance: BEVACIZUMAB
     Indication: Rectal cancer
     Dosage: ACCORDING TO SOURCE DESCRIPTION, CHANGE UNIT FROM MB TO MG.
     Route: 042
     Dates: start: 20240904, end: 20240904
  2. SODIUM CHLORIDE [Suspect]
     Active Substance: SODIUM CHLORIDE
     Indication: Rectal cancer
     Dosage: ACCORDING TO SOURCE DESCRIPTION, CHANGE THERAPY START DATE AND THERAPY END DATE FROM 03-SEP-2024 TO
     Route: 050
     Dates: start: 20240903, end: 20240903
  3. SODIUM CHLORIDE [Suspect]
     Active Substance: SODIUM CHLORIDE
     Dosage: ACCORDING TO SOURCE DESCRIPTION, CHANGE THERAPY START DATE AND THERAPY END DATE FROM 03-SEP-2024 TO
     Route: 050
     Dates: start: 20240904, end: 20240904
  4. SODIUM CHLORIDE [Suspect]
     Active Substance: SODIUM CHLORIDE
     Route: 042
     Dates: start: 20240904, end: 20240904
  5. SODIUM CHLORIDE [Suspect]
     Active Substance: SODIUM CHLORIDE
     Route: 042
     Dates: start: 20240904, end: 20240904
  6. FLUOROURACIL [Suspect]
     Active Substance: FLUOROURACIL
     Indication: Rectal cancer
     Route: 050
     Dates: start: 20240904, end: 20240904
  7. FLUOROURACIL [Suspect]
     Active Substance: FLUOROURACIL
     Dosage: ACCORDING TO SOURCE DESCRIPTION, CHANGE THERAPY END DATE FROM 04-OCT-2024 TO 04-SEP-2024
     Route: 050
     Dates: start: 20240904, end: 20240904
  8. IRINOTECAN HYDROCHLORIDE [Suspect]
     Active Substance: IRINOTECAN HYDROCHLORIDE
     Indication: Rectal cancer
     Route: 042
     Dates: start: 20240904, end: 20240904

REACTIONS (1)
  - Myelosuppression [Recovering/Resolving]

NARRATIVE: CASE EVENT DATE: 20240912
